FAERS Safety Report 14309261 (Version 2)
Quarter: 2018Q1

REPORT INFORMATION
  Report Type: Spontaneous
  Country: CH (occurrence: CH)
  Receive Date: 20171220
  Receipt Date: 20180126
  Transmission Date: 20180509
  Serious: No
  Sender: FDA-Public Use
  Company Number: CH-OTSUKA-2017_027325

PATIENT
  Age: 36 Year
  Sex: Female

DRUGS (2)
  1. JINARC [Suspect]
     Active Substance: TOLVAPTAN
     Dosage: 15 UNK, QD (UNITS UNKNOWN)
     Route: 065
     Dates: start: 201706, end: 201710
  2. JINARC [Suspect]
     Active Substance: TOLVAPTAN
     Indication: CONGENITAL CYSTIC KIDNEY DISEASE
     Dosage: 45 UNK, QD (UNITS UNKNOWN)
     Route: 065
     Dates: start: 201706, end: 201710

REACTIONS (2)
  - General physical health deterioration [Unknown]
  - Sleep disorder [Unknown]

NARRATIVE: CASE EVENT DATE: 2017
